FAERS Safety Report 17047091 (Version 2)
Quarter: 2019Q4

REPORT INFORMATION
  Report Type: Spontaneous
  Country: US (occurrence: US)
  Receive Date: 20191119
  Receipt Date: 20191120
  Transmission Date: 20200122
  Serious: No
  Sender: FDA-Public Use
  Company Number: US-ACCORD-073088

PATIENT
  Sex: Male

DRUGS (1)
  1. HYDROCHLOROTHIAZIDE ACCORD [Suspect]
     Active Substance: HYDROCHLOROTHIAZIDE
     Indication: HYPERTENSION
     Route: 048
     Dates: start: 201806, end: 20180921

REACTIONS (5)
  - Dizziness [Recovering/Resolving]
  - Gastrointestinal pain [Recovering/Resolving]
  - Recalled product administered [Unknown]
  - Bowel movement irregularity [Recovering/Resolving]
  - Abdominal discomfort [Recovering/Resolving]
